FAERS Safety Report 21740594 (Version 1)
Quarter: 2022Q4

REPORT INFORMATION
  Report Type: Spontaneous
  Country: CA (occurrence: CA)
  Receive Date: 20221216
  Receipt Date: 20221216
  Transmission Date: 20230113
  Serious: Yes (Hospitalization, Other)
  Sender: FDA-Public Use
  Company Number: CA-BAYER-2022A167819

PATIENT

DRUGS (6)
  1. NAPROXEN SODIUM [Suspect]
     Active Substance: NAPROXEN SODIUM
     Dosage: UNK
  2. MESALAMINE [Suspect]
     Active Substance: MESALAMINE
  3. AZATHIOPRINE [Suspect]
     Active Substance: AZATHIOPRINE
  4. ESOMEPRAZOLE MAGNESIUM [Suspect]
     Active Substance: ESOMEPRAZOLE MAGNESIUM
     Dosage: UNK
  5. FIBRINOGEN [Suspect]
     Active Substance: FIBRINOGEN HUMAN
     Dosage: UNK
  6. RANITIDINE HYDROCHLORIDE [Suspect]
     Active Substance: RANITIDINE HYDROCHLORIDE

REACTIONS (5)
  - Foetal anaemia [Unknown]
  - Foetal exposure during pregnancy [Unknown]
  - Foetal growth restriction [Unknown]
  - Haemorrhage foetal [Unknown]
  - Haemorrhage in pregnancy [Unknown]
